FAERS Safety Report 14967170 (Version 1)
Quarter: 2018Q2

REPORT INFORMATION
  Report Type: Report from Study
  Country: JP (occurrence: JP)
  Receive Date: 20180604
  Receipt Date: 20180604
  Transmission Date: 20180711
  Serious: Yes (Life-Threatening, Other)
  Sender: FDA-Public Use
  Company Number: JP-CHEPLA-C20170262_C

PATIENT
  Age: 70 Year
  Sex: Male

DRUGS (13)
  1. CYTARABINE. [Suspect]
     Active Substance: CYTARABINE
     Indication: ACUTE PROMYELOCYTIC LEUKAEMIA
     Dosage: TIT REGIMEN (INCLUDING CYTARABINE 40 MG) 5 TIMES FOR CNS PROPHYLAXIS AFTER INITIAL DIAGNOSIS
     Route: 037
  2. CYTARABINE. [Suspect]
     Active Substance: CYTARABINE
     Indication: ACUTE PROMYELOCYTIC LEUKAEMIA
     Dosage: TIT REGIMEN (INCLUDING CYTARABINE) TREATMENT OF 1ST CNS RELAPSE
     Route: 037
  3. ARSENIC TRIOXIDE (ATO) [Suspect]
     Active Substance: ARSENIC TRIOXIDE
     Indication: ACUTE PROMYELOCYTIC LEUKAEMIA
     Dosage: TWO COURSES OF ATO (0.15 MG/KG/DAY IN 5 DAYS A WEEK FOR 5 WEEKS; MAINTENANCE AFTER DIAGNOSIS)
  4. ARSENIC TRIOXIDE (ATO) [Suspect]
     Active Substance: ARSENIC TRIOXIDE
     Indication: ACUTE PROMYELOCYTIC LEUKAEMIA
     Dosage: RE-ADMINISTERED AFTER LOSS OF MCR IN MB
  5. TAMIBAROTENE (AM80) [Suspect]
     Active Substance: TAMIBAROTENE
     Indication: ACUTE PROMYELOCYTIC LEUKAEMIA
     Dosage: TWELVE COURSES OF AM80 (6 MG/M2 ORALLY FOR 14 DAYS; MAINTENANCE AFTER INITIAL THERAPY)
  6. DAUNORUBICIN (DNR) [Suspect]
     Active Substance: DAUNORUBICIN
     Indication: ACUTE PROMYELOCYTIC LEUKAEMIA
     Dosage: DNR 50 MG/M2 FOR 5 DAYS (INITIAL TREATMENT)
  7. METHOTREXATE. [Suspect]
     Active Substance: METHOTREXATE
     Dosage: TIT REGIMEN (INCLUDING METHOTREAXATE 15MG) 5 TIMES FOR CNS PROPHYLAXIS AFTER INITIAL DIAGNOSIS
     Route: 037
  8. METHOTREXATE. [Suspect]
     Active Substance: METHOTREXATE
     Dosage: TIT REGIMEN (INCLUDING METHOTREXATE) TREATMENT OF 1ST CNS RELAPSE
     Route: 037
  9. PREDNISOLONE. [Suspect]
     Active Substance: PREDNISOLONE
     Indication: ACUTE PROMYELOCYTIC LEUKAEMIA
     Dosage: TIT REGIMEN (INCLUDING PREDNISOLONE 10 MG) 5 TIMES FOR CNS PROPHYLAXIS AFTER INITIAL TREATMENT
     Route: 037
  10. GEMTUZUMAB OZOGAMICIN [Suspect]
     Active Substance: GEMTUZUMAB OZOGAMICIN
     Indication: ACUTE PROMYELOCYTIC LEUKAEMIA
     Dosage: TREATMENT OF 1ST RELAPSE
  11. ALL-TRANS RETINOIC ACID (ATRA) [Suspect]
     Active Substance: TRETINOIN
     Indication: ACUTE PROMYELOCYTIC LEUKAEMIA
     Dosage: ATRA  (FROM DAY 3 OF INITIAL TREATMENT;  TREATMENT OF 1ST RELAPSE)
  12. CYTARABINE. [Suspect]
     Active Substance: CYTARABINE
     Indication: ACUTE PROMYELOCYTIC LEUKAEMIA
     Dosage: 100 MG/M2 FOR 7 DAYS
  13. PREDNISOLONE. [Suspect]
     Active Substance: PREDNISOLONE
     Indication: ACUTE PROMYELOCYTIC LEUKAEMIA
     Dosage: TIT REGIMEN (INCLUDING PREDNISOLONE) TREATMENT OF 1ST CNS RELAPSE
     Route: 037

REACTIONS (8)
  - Haemorrhage [Unknown]
  - Productive cough [Unknown]
  - Subdural haematoma [Unknown]
  - Leukaemia recurrent [Unknown]
  - Haemoptysis [None]
  - Acute promyelocytic leukaemia [None]
  - Central nervous system leukaemia [Unknown]
  - Seizure [Recovered/Resolved]
